FAERS Safety Report 19849500 (Version 7)
Quarter: 2022Q3

REPORT INFORMATION
  Report Type: Other
  Country: UG (occurrence: UG)
  Receive Date: 20210918
  Receipt Date: 20220729
  Transmission Date: 20221027
  Serious: Yes (Death, Congenital Anomaly, Other)
  Sender: FDA-Public Use
  Company Number: UG-MACLEODS PHARMA UK LTD-MAC2021032676

PATIENT

DRUGS (5)
  1. TENOFOVIR [Suspect]
     Active Substance: TENOFOVIR
     Indication: Product used for unknown indication
     Dosage: UNK, 1 COURSE PRIOR TO CONCEPTION
     Route: 064
     Dates: start: 20191011
  2. TENOFOVIR [Suspect]
     Active Substance: TENOFOVIR
     Dosage: 600 MILLIGRAM, QD, 2 COURSE, PRIOR TO CONCEPTION
     Route: 064
     Dates: start: 20191115, end: 20210305
  3. EMTRICITABINE\TENOFOVIR [Suspect]
     Active Substance: EMTRICITABINE\TENOFOVIR
     Indication: Product used for unknown indication
     Dosage: 500 MILLIGRAM, QD; 1 COURSE DURING FIRST TRIMESTER
     Route: 064
     Dates: start: 20210430
  4. MEBENDAZOLE [Suspect]
     Active Substance: MEBENDAZOLE
     Indication: Product used for unknown indication
     Dosage: UNK
     Route: 065
  5. LEVONORGESTREL [Suspect]
     Active Substance: LEVONORGESTREL
     Indication: Product used for unknown indication
     Dosage: UNK, PRIOR TO CONCEPTION AND DURING FIRST TRIMESTER
     Route: 065
     Dates: start: 20180412

REACTIONS (4)
  - Exomphalos [Fatal]
  - Sepsis neonatal [Fatal]
  - Dehydration [Fatal]
  - Foetal exposure during pregnancy [Unknown]

NARRATIVE: CASE EVENT DATE: 20210826
